FAERS Safety Report 9287908 (Version 1)
Quarter: 2013Q2

REPORT INFORMATION
  Report Type: Spontaneous
  Country: US (occurrence: US)
  Receive Date: 20130514
  Receipt Date: 20130514
  Transmission Date: 20140414
  Serious: Yes (Death)
  Sender: FDA-Public Use
  Company Number: US-ASTELLAS-2013US004973

PATIENT
  Sex: Male
  Weight: 82 kg

DRUGS (1)
  1. MYCAMINE [Suspect]
     Indication: CANDIDA INFECTION
     Dosage: 100 MG, UNKNOWN/D
     Route: 042
     Dates: start: 20130204, end: 20130212

REACTIONS (1)
  - Death [Fatal]
